FAERS Safety Report 7480294-9 (Version None)
Quarter: 2011Q2

REPORT INFORMATION
  Report Type: 
  Country: None (occurrence: None)
  Receive Date: 20110512
  Receipt Date: 20110512
  Transmission Date: 20111010
  Serious: Yes (Hospitalization)
  Sender: FDA-Public Use
  Company Number: None

PATIENT
  Age: 47 Year
  Sex: Female
  Weight: 94.8018 kg

DRUGS (2)
  1. LEVAQUIN [Suspect]
     Indication: SINUSITIS
     Dosage: 500MG OD PO
     Route: 048
     Dates: start: 20110503
  2. LEVAQUIN [Suspect]
     Indication: SINUSITIS
     Dosage: 500MG OD PO
     Route: 048
     Dates: start: 20110502

REACTIONS (6)
  - MUSCLE TIGHTNESS [None]
  - MULTIPLE SCLEROSIS [None]
  - SPEECH DISORDER [None]
  - DYSTONIA [None]
  - FEELING ABNORMAL [None]
  - CONDITION AGGRAVATED [None]
